FAERS Safety Report 18989240 (Version 1)
Quarter: 2021Q1

REPORT INFORMATION
  Report Type: Spontaneous
  Country: US (occurrence: US)
  Receive Date: 20210310
  Receipt Date: 20210310
  Transmission Date: 20210420
  Serious: No
  Sender: FDA-Public Use
  Company Number: US-SA-2021SA080089

PATIENT
  Sex: Female

DRUGS (1)
  1. DUPIXENT [Suspect]
     Active Substance: DUPILUMAB
     Indication: DERMATITIS ATOPIC
     Dosage: 300 MG, QOW
     Route: 058
     Dates: start: 202009

REACTIONS (8)
  - Insomnia [Unknown]
  - Skin burning sensation [Unknown]
  - Scratch [Unknown]
  - Weight decreased [Unknown]
  - Nervousness [Unknown]
  - Psoriasis [Unknown]
  - Decreased appetite [Unknown]
  - Skin haemorrhage [Unknown]
